FAERS Safety Report 13099281 (Version 2)
Quarter: 2017Q4

REPORT INFORMATION
  Report Type: Spontaneous
  Country: US (occurrence: US)
  Receive Date: 20170109
  Receipt Date: 20171113
  Transmission Date: 20180320
  Serious: No
  Sender: FDA-Public Use
  Company Number: US-BAXALTA-2017BLT000055

PATIENT
  Sex: Female
  Weight: 106.5 kg

DRUGS (2)
  1. HYQVIA [Suspect]
     Active Substance: HUMAN IMMUNOGLOBULIN G\HYALURONIDASE RECOMBINANT HUMAN
     Dosage: 67 G, EVERY 4 WK
     Route: 058
     Dates: start: 201709
  2. HYQVIA [Suspect]
     Active Substance: HUMAN IMMUNOGLOBULIN G\HYALURONIDASE RECOMBINANT HUMAN
     Indication: PRIMARY IMMUNODEFICIENCY SYNDROME
     Dosage: 60 G, EVERY 4 WK
     Route: 058
     Dates: start: 201603, end: 201709

REACTIONS (3)
  - Maternal exposure before pregnancy [Recovered/Resolved]
  - Exposure during pregnancy [Recovered/Resolved]
  - Nausea [Recovered/Resolved]
